FAERS Safety Report 8665749 (Version 6)
Quarter: 2013Q4

REPORT INFORMATION
  Report Type: Report from Study
  Country: FR (occurrence: FR)
  Receive Date: 20120716
  Receipt Date: 20131129
  Transmission Date: 20140711
  Serious: Yes (Death, Hospitalization)
  Sender: FDA-Public Use
  Company Number: FR-009507513-1207FRA000245

PATIENT
  Age: 54 Year
  Sex: Male
  Weight: 88 kg

DRUGS (16)
  1. VIRAFERONPEG [Suspect]
     Indication: HEPATITIS C
     Dosage: 150 MICROGRAM, QW
     Dates: start: 20120509, end: 20120703
  2. VIRAFERONPEG [Suspect]
     Dosage: 1 MICROGRAM PER KILOGRAM, QW
     Dates: start: 20120618, end: 20120706
  3. VIRAFERONPEG [Suspect]
     Dosage: UNK
  4. BOCEPREVIR [Suspect]
     Indication: HEPATITIS C
     Dosage: 2400 MG, QD
     Dates: start: 20120611, end: 20120706
  5. REBETOL [Suspect]
     Indication: HEPATITIS C
     Dosage: 1200 MG, QD
     Dates: start: 20120509, end: 20120620
  6. REBETOL [Suspect]
     Dosage: 800 MG, QD
     Dates: start: 20120620, end: 20120706
  7. SPIRONOLACTONE [Concomitant]
     Indication: OEDEMA
     Dosage: 75 MG, UNK
  8. FUROSEMIDE [Concomitant]
     Indication: OEDEMA
     Dosage: 20 MG, UNK
     Dates: start: 20120529
  9. PROPRANOLOL HYDROCHLORIDE [Concomitant]
     Indication: PORTAL HYPERTENSION
     Dosage: 160 MG, QD
  10. LACTULOSE [Concomitant]
     Indication: ENCEPHALOPATHY
     Dosage: 150 MG, UNK
  11. LOVENOX [Concomitant]
     Indication: PROPHYLAXIS
     Dosage: 0.4 ML, UNK
  12. MAGNE B6 TABLETS [Concomitant]
     Indication: MAGNESIUM DEFICIENCY
     Dosage: 2 DF, UNK
  13. SPASFON [Concomitant]
     Indication: PAIN
     Dosage: 4 DF, UNK
  14. MOTILIUM [Concomitant]
     Indication: OESOPHAGEAL DISORDER
     Dosage: 20 MG, UNK
  15. OMEPRAZOLE [Concomitant]
     Indication: OESOPHAGEAL DISORDER
  16. NORMIX [Concomitant]
     Indication: INFECTION
     Dosage: 2 DF, UNK

REACTIONS (6)
  - Death [Fatal]
  - Hepatic haemorrhage [Fatal]
  - Lung disorder [Recovering/Resolving]
  - Sepsis [Recovering/Resolving]
  - Respiratory distress [Not Recovered/Not Resolved]
  - Renal failure acute [Recovering/Resolving]
